FAERS Safety Report 19941529 (Version 1)
Quarter: 2021Q4

REPORT INFORMATION
  Report Type: Spontaneous
  Country: US (occurrence: US)
  Receive Date: 20211011
  Receipt Date: 20211011
  Transmission Date: 20220303
  Serious: No
  Sender: FDA-Public Use
  Company Number: US-JAZZ-2021-US-006292

PATIENT
  Age: 26 Year
  Sex: Male

DRUGS (2)
  1. SUNOSI [Suspect]
     Active Substance: SOLRIAMFETOL
     Indication: Narcolepsy
     Dosage: 150 MILLIGRAM, QD, EVERY MORNING
     Route: 048
     Dates: start: 20210113, end: 202101
  2. SUNOSI [Suspect]
     Active Substance: SOLRIAMFETOL
     Dosage: 1/4 TABLET DAILY
     Route: 048

REACTIONS (4)
  - Gastrointestinal disorder [Not Recovered/Not Resolved]
  - Anxiety [Recovered/Resolved]
  - Hyperhidrosis [Not Recovered/Not Resolved]
  - Wrong technique in product usage process [Unknown]

NARRATIVE: CASE EVENT DATE: 20210101
